FAERS Safety Report 22245874 (Version 1)
Quarter: 2023Q2

REPORT INFORMATION
  Report Type: Spontaneous
  Country: US (occurrence: US)
  Receive Date: 20230424
  Receipt Date: 20230424
  Transmission Date: 20230722
  Serious: No
  Sender: FDA-Public Use
  Company Number: US-GSK-US2023AMR057617

PATIENT

DRUGS (1)
  1. NUCALA [Suspect]
     Active Substance: MEPOLIZUMAB
     Indication: Product used for unknown indication
     Dosage: UNK

REACTIONS (10)
  - Peripheral swelling [Unknown]
  - Pain in extremity [Unknown]
  - Erythema [Unknown]
  - Arthritis [Unknown]
  - Pain [Unknown]
  - Asthma [Unknown]
  - Asthenia [Unknown]
  - Fatigue [Unknown]
  - Movement disorder [Unknown]
  - Expired product administered [Unknown]
